FAERS Safety Report 8953501 (Version 1)
Quarter: 2012Q4

REPORT INFORMATION
  Report Type: 
  Country: IT (occurrence: IT)
  Receive Date: 20121206
  Receipt Date: 20121206
  Transmission Date: 20130627
  Serious: Yes (Hospitalization)
  Sender: FDA-Public Use
  Company Number: IT-GLAXOSMITHKLINE-B0850014A

PATIENT
  Age: 37 Year
  Sex: Male

DRUGS (1)
  1. ZANTAC [Suspect]
     Indication: PRODUCT USED FOR UNKNOWN INDICATION
     Dosage: 50MG per day
     Route: 042
     Dates: start: 20121112, end: 20121112

REACTIONS (2)
  - Erythema [Recovered/Resolved]
  - Erythema [Recovered/Resolved]
